FAERS Safety Report 9729610 (Version 1)
Quarter: 2013Q4

REPORT INFORMATION
  Report Type: Spontaneous
  Country: GB (occurrence: None)
  Receive Date: 20131203
  Receipt Date: 20131203
  Transmission Date: 20140711
  Serious: Yes (Hospitalization)
  Sender: FDA-Public Use
  Company Number: AUR-APL-2013-09851

PATIENT
  Age: 38 Year
  Sex: Male

DRUGS (6)
  1. IBUPROFEN (IBUPROFEN) [Suspect]
     Indication: BACK PAIN
     Dosage: 1800 MG (600MG, 3 IN 1 D), ORAL
     Route: 048
     Dates: start: 201202, end: 20131108
  2. SERTRALINE (SERTRALINE) [Suspect]
     Indication: DEPRESSED MOOD
     Dosage: 100MG (100 MG,  IN 1 D), ORAL
     Route: 048
     Dates: start: 201205
  3. GABAPENTIN (GABAPENTIN) [Concomitant]
  4. SALBUTAMOL (SALBUTAMOL) [Concomitant]
  5. TIOTROPIUM (TIOTROPIUM) [Concomitant]
  6. TRAMADOL (TRAMADOL) [Concomitant]

REACTIONS (2)
  - Depressed mood [None]
  - Gastrointestinal haemorrhage [None]
